FAERS Safety Report 22039025 (Version 1)
Quarter: 2023Q1

REPORT INFORMATION
  Report Type: Spontaneous
  Country: US (occurrence: US)
  Receive Date: 20230227
  Receipt Date: 20230227
  Transmission Date: 20230418
  Serious: No
  Sender: FDA-Public Use
  Company Number: US-SA-SAC20230224001481

PATIENT
  Age: 60 Year
  Sex: Male

DRUGS (4)
  1. CERDELGA [Suspect]
     Active Substance: ELIGLUSTAT
     Indication: Gaucher^s disease type I
  2. MIGLUSTAT [Suspect]
     Active Substance: MIGLUSTAT
  3. TALIGLUCERASE ALFA [Suspect]
     Active Substance: TALIGLUCERASE ALFA
  4. VELAGLUCERASE ALFA [Suspect]
     Active Substance: VELAGLUCERASE ALFA

REACTIONS (1)
  - Chitotriosidase decreased [Unknown]
